FAERS Safety Report 14590048 (Version 2)
Quarter: 2018Q1

REPORT INFORMATION
  Report Type: Report from Study
  Country: US (occurrence: US)
  Receive Date: 20180302
  Receipt Date: 20180313
  Transmission Date: 20180509
  Serious: Yes (Life-Threatening, Hospitalization)
  Sender: FDA-Public Use
  Company Number: US-ROCHE-2082087

PATIENT
  Age: 73 Year
  Sex: Male
  Weight: 105 kg

DRUGS (15)
  1. SOTALOL. [Concomitant]
     Active Substance: SOTALOL
     Indication: ATRIAL FIBRILLATION
  2. SAXAGLIPTIN [Concomitant]
     Active Substance: SAXAGLIPTIN
     Indication: TYPE 2 DIABETES MELLITUS
  3. DIOVAN [Concomitant]
     Active Substance: VALSARTAN
     Indication: HYPERTENSION
     Route: 065
     Dates: start: 20180101
  4. ACYCLOVIR. [Concomitant]
     Active Substance: ACYCLOVIR
     Route: 065
     Dates: start: 20171212
  5. ATEZOLIZUMAB. [Suspect]
     Active Substance: ATEZOLIZUMAB
     Indication: ACUTE MYELOID LEUKAEMIA
     Dosage: ON DAYS 8 AND 22 OF EACH 28-DAY CYCLE.?DATE OF MOST RECENT DOSE PRIOR TO AE ONSET: 26/FEB/2018 AT 11
     Route: 042
     Dates: start: 20171218
  6. METFORMIN [Concomitant]
     Active Substance: METFORMIN HYDROCHLORIDE
     Indication: TYPE 2 DIABETES MELLITUS
     Route: 065
  7. SUCRALFATE. [Concomitant]
     Active Substance: SUCRALFATE
     Indication: GASTROOESOPHAGEAL REFLUX DISEASE
  8. NOXAFIL [Concomitant]
     Active Substance: POSACONAZOLE
     Route: 065
     Dates: start: 20171212
  9. VORICONAZOLE. [Concomitant]
     Active Substance: VORICONAZOLE
     Route: 065
     Dates: start: 20171212
  10. GUADECITABINE [Suspect]
     Active Substance: GUADECITABINE
     Indication: ACUTE MYELOID LEUKAEMIA
     Dosage: ON DAYS 1-5 OF EVERY 28-DAY CYCLE?DATE OF MOST RECENT DOSE PRIOR TO AE ONSET: 23/FEB/2018 AT 9:11 (D
     Route: 058
     Dates: start: 20171211
  11. SUCRALFATE. [Concomitant]
     Active Substance: SUCRALFATE
     Indication: ABDOMINAL DISCOMFORT
  12. AMBIEN [Concomitant]
     Active Substance: ZOLPIDEM TARTRATE
     Indication: INSOMNIA
  13. CIPRO [Concomitant]
     Active Substance: CIPROFLOXACIN HYDROCHLORIDE
  14. ROSUVASTATIN. [Concomitant]
     Active Substance: ROSUVASTATIN
     Indication: BLOOD CHOLESTEROL INCREASED
  15. PANTOPRAZOLE [Concomitant]
     Active Substance: PANTOPRAZOLE
     Indication: GASTROOESOPHAGEAL REFLUX DISEASE

REACTIONS (2)
  - Infusion related reaction [Recovering/Resolving]
  - Anaphylactic reaction [Recovering/Resolving]

NARRATIVE: CASE EVENT DATE: 20180226
